FAERS Safety Report 14567597 (Version 2)
Quarter: 2020Q1

REPORT INFORMATION
  Report Type: Spontaneous
  Country: US (occurrence: US)
  Receive Date: 20180223
  Receipt Date: 20200227
  Transmission Date: 20200409
  Serious: No
  Sender: FDA-Public Use
  Company Number: US-JNJFOC-20180216806

PATIENT
  Sex: Male

DRUGS (4)
  1. RISPERDAL [Suspect]
     Active Substance: RISPERIDONE
     Indication: BEHAVIOUR DISORDER
     Dosage: IN VARYING DOSES OF 0.5 MG, 1 MG AND 1.5 MG
     Route: 048
     Dates: start: 20090312, end: 20091012
  2. RISPERDAL [Suspect]
     Active Substance: RISPERIDONE
     Route: 048
     Dates: end: 20130116
  3. RISPERIDONE. [Suspect]
     Active Substance: RISPERIDONE
     Indication: BEHAVIOUR DISORDER
     Dosage: IN VARYING DOSES OF 0.25 MG, 0.5 MG,1 MG
     Route: 048
     Dates: start: 20100716, end: 20120705
  4. RISPERDAL [Suspect]
     Active Substance: RISPERIDONE
     Route: 048
     Dates: start: 20120718, end: 20120731

REACTIONS (2)
  - Gynaecomastia [Unknown]
  - Emotional distress [Unknown]
